FAERS Safety Report 6674095-9 (Version None)
Quarter: 2010Q1

REPORT INFORMATION
  Report Type: 
  Country: None (occurrence: None)
  Receive Date: 20100329
  Receipt Date: 20100204
  Transmission Date: 20100710
  Serious: Yes (Other)
  Sender: FDA-Public Use
  Company Number: 2010015743

PATIENT
  Sex: 0

DRUGS (1)
  1. GEODON [Suspect]
     Dosage: 120 MG

REACTIONS (1)
  - ELECTROCARDIOGRAM QT PROLONGED [None]
